FAERS Safety Report 4555351-7 (Version None)
Quarter: 2005Q1

REPORT INFORMATION
  Report Type: 
  Country: None (occurrence: None)
  Receive Date: 20050118
  Receipt Date: 20050118
  Transmission Date: 20050727
  Serious: Yes (Other)
  Sender: FDA-Public Use
  Company Number: None

PATIENT
  Sex: Female
  Weight: 126.1 kg

DRUGS (1)
  1. ZIPRASIDONE 80 MG [Suspect]
     Dosage: 160MG QDORAL
     Route: 048

REACTIONS (3)
  - PYREXIA [None]
  - TACHYCARDIA [None]
  - TREMOR [None]
